FAERS Safety Report 5392140-8 (Version None)
Quarter: 2007Q3

REPORT INFORMATION
  Report Type: 
  Country: None (occurrence: None)
  Receive Date: 20070718
  Receipt Date: 20070718
  Transmission Date: 20080115
  Serious: Yes (Hospitalization)
  Sender: FDA-Public Use
  Company Number: None

PATIENT
  Age: 58 Year
  Sex: Male

DRUGS (2)
  1. CISPLATIN [Suspect]
     Indication: ATRIAL FIBRILLATION
     Dosage: 130MG ONCE IV
     Route: 042
     Dates: start: 20070526, end: 20070527
  2. ACETAMINOPHEN, ASPIRIN AND CAFFEINE [Suspect]

REACTIONS (2)
  - NAUSEA [None]
  - VOMITING [None]
